FAERS Safety Report 12521159 (Version 4)
Quarter: 2016Q3

REPORT INFORMATION
  Report Type: Report from Study
  Country: US (occurrence: US)
  Receive Date: 20160701
  Receipt Date: 20160926
  Transmission Date: 20161109
  Serious: Yes (Hospitalization, Other)
  Sender: FDA-Public Use
  Company Number: US-ASTELLAS-2016US014553

PATIENT
  Age: 75 Year
  Sex: Male

DRUGS (25)
  1. ALEVE [Concomitant]
     Active Substance: NAPROXEN SODIUM
     Indication: HAEMORRHAGE URINARY TRACT
     Route: 048
     Dates: start: 201502
  2. VITAMIN C [Concomitant]
     Active Substance: ASCORBIC ACID
     Route: 048
  3. ASPIRIN. [Concomitant]
     Active Substance: ASPIRIN
     Indication: ARRHYTHMIA PROPHYLAXIS
     Route: 048
     Dates: start: 201205
  4. LUPRON [Concomitant]
     Active Substance: LEUPROLIDE ACETATE
     Indication: PROSTATE CANCER
     Route: 030
     Dates: start: 20110705
  5. VITAMIN D3 [Concomitant]
     Active Substance: CHOLECALCIFEROL
     Indication: SUPPLEMENTATION THERAPY
     Route: 048
     Dates: start: 2010
  6. FLOMAX [Concomitant]
     Active Substance: TAMSULOSIN HYDROCHLORIDE
     Indication: MICTURITION URGENCY
     Route: 048
     Dates: start: 20160321
  7. ENZALUTAMIDE [Suspect]
     Active Substance: ENZALUTAMIDE
     Indication: PROSTATE CANCER
     Route: 048
     Dates: start: 20140131
  8. DILAUDID [Concomitant]
     Active Substance: HYDROMORPHONE HYDROCHLORIDE
     Indication: PAIN
     Dosage: 2 MG, EVERY 4 HOURS AS NEEDED
     Route: 048
     Dates: start: 20160122
  9. OPIUM + BELLADONNA [Concomitant]
     Indication: BLADDER SPASM
     Dosage: 16.2 MG, AS NEEDED
     Route: 065
     Dates: start: 20150722
  10. SUDAFED [Concomitant]
     Active Substance: PSEUDOEPHEDRINE HYDROCHLORIDE
     Indication: SEASONAL ALLERGY
     Route: 048
     Dates: start: 20140519
  11. PROLIA [Concomitant]
     Active Substance: DENOSUMAB
     Indication: OSTEOPOROSIS
     Route: 048
     Dates: start: 20151019
  12. NORCO [Concomitant]
     Active Substance: ACETAMINOPHEN\HYDROCODONE BITARTRATE
     Indication: STENT PLACEMENT
     Dosage: 7.5/325 MG, AS NEEDED
     Route: 048
     Dates: start: 20150715
  13. ZYRTEC [Concomitant]
     Active Substance: CETIRIZINE HYDROCHLORIDE
     Indication: SEASONAL ALLERGY
     Dosage: 10 MG, ONCE DAILY AS NEEDED
     Route: 048
     Dates: start: 20140411
  14. CRANBERRY                          /01512301/ [Concomitant]
     Active Substance: CRANBERRY
     Indication: SUPPLEMENTATION THERAPY
     Dosage: UNK UNK, ONCE DAILY
     Route: 048
     Dates: start: 2010
  15. LEVAQUIN [Concomitant]
     Active Substance: LEVOFLOXACIN
     Indication: HAEMATURIA
     Dosage: 500 MG, ONCE DAILY AS NEEDED
     Route: 048
     Dates: start: 20140318
  16. DILAUDID [Concomitant]
     Active Substance: HYDROMORPHONE HYDROCHLORIDE
     Indication: STENT PLACEMENT
     Route: 048
     Dates: start: 20150629
  17. VITAMIN B12 [Concomitant]
     Active Substance: CYANOCOBALAMIN
     Indication: SUPPLEMENTATION THERAPY
     Route: 048
     Dates: start: 2010
  18. VITAMIN C [Concomitant]
     Active Substance: ASCORBIC ACID
     Indication: SUPPLEMENTATION THERAPY
     Route: 048
     Dates: start: 20140212
  19. FLONASE                            /00908302/ [Concomitant]
     Active Substance: MOMETASONE FUROATE
     Indication: SEASONAL ALLERGY
     Dosage: 15 MG, ONCE DAILY AS NEEDED
     Route: 045
     Dates: start: 20140421
  20. GINGER                             /01646601/ [Concomitant]
     Active Substance: GINGER
     Indication: SUPPLEMENTATION THERAPY
     Route: 048
     Dates: start: 201510
  21. THERAGRAN                          /01824401/ [Concomitant]
     Indication: PRODUCT USED FOR UNKNOWN INDICATION
     Route: 048
  22. UROCIT K [Concomitant]
     Indication: SUPPLEMENTATION THERAPY
     Route: 048
     Dates: start: 2011
  23. VALIUM [Concomitant]
     Active Substance: DIAZEPAM
     Indication: PROPHYLAXIS
     Route: 048
     Dates: start: 20160321
  24. CALCIUM VITAMIN D [Concomitant]
     Active Substance: CALCIUM\VITAMIN D
     Indication: PRODUCT USED FOR UNKNOWN INDICATION
     Route: 048
  25. POTASSIUM CITRATE. [Concomitant]
     Active Substance: POTASSIUM CITRATE
     Indication: PRODUCT USED FOR UNKNOWN INDICATION
     Route: 048

REACTIONS (8)
  - Transient global amnesia [Recovered/Resolved]
  - Cerebral artery stenosis [Not Recovered/Not Resolved]
  - Carotid artery stenosis [Recovering/Resolving]
  - Transient global amnesia [Recovered/Resolved]
  - Dysphagia [Recovered/Resolved]
  - Carotid artery stenosis [Recovered/Resolved]
  - Transient ischaemic attack [Recovered/Resolved]
  - Anaemia [Recovered/Resolved]

NARRATIVE: CASE EVENT DATE: 20160326
